FAERS Safety Report 23084215 (Version 1)
Quarter: 2023Q4

REPORT INFORMATION
  Report Type: Spontaneous
  Country: US (occurrence: US)
  Receive Date: 20231019
  Receipt Date: 20231019
  Transmission Date: 20240110
  Serious: Yes (Hospitalization)
  Sender: FDA-Public Use
  Company Number: US-TASMAN PHARMA, INC.-2023TSM00167

PATIENT
  Age: 28 Year
  Sex: Male

DRUGS (5)
  1. CLOZAPINE [Suspect]
     Active Substance: CLOZAPINE
     Dosage: 75 MG, 1X/DAY (MORNING)
  2. CLOZAPINE [Suspect]
     Active Substance: CLOZAPINE
     Dosage: 450 MG, 1X/DAY (AT BEDTIME)
  3. BUPROPION [Concomitant]
     Active Substance: BUPROPION
     Dosage: 150 MG, 1X/DAY
  4. FLUVOXAMINE [Concomitant]
     Active Substance: FLUVOXAMINE
     Dosage: 100 MG, 1X/DAY
  5. GLYCOPYRROLATE [Concomitant]
     Active Substance: GLYCOPYRROLATE
     Indication: Salivary hypersecretion
     Dosage: 1 MG, 1X/DAY

REACTIONS (3)
  - Pulmonary cavitation [Unknown]
  - Pneumonia aspiration [Unknown]
  - Toxicity to various agents [Unknown]
